FAERS Safety Report 8669742 (Version 2)
Quarter: 2013Q4

REPORT INFORMATION
  Report Type: Spontaneous
  Country: GB (occurrence: GB)
  Receive Date: 20120718
  Receipt Date: 20131031
  Transmission Date: 20140711
  Serious: Yes (Other)
  Sender: FDA-Public Use
  Company Number: GB-009507513-1207GBR004661

PATIENT
  Age: 43 Year
  Sex: Male
  Weight: 77 kg

DRUGS (3)
  1. CLARITYN ALLERGY [Suspect]
     Dosage: UNK
     Dates: start: 20120615
  2. TEGRETOL [Concomitant]
     Dosage: UNK
     Dates: start: 20120410, end: 20120508
  3. TEGRETOL [Concomitant]
     Dosage: UNK
     Dates: start: 20120530, end: 20120627

REACTIONS (3)
  - Angioedema [Recovering/Resolving]
  - Lip swelling [Recovering/Resolving]
  - Paraesthesia oral [Recovering/Resolving]
